FAERS Safety Report 6242861-X (Version None)
Quarter: 2009Q2

REPORT INFORMATION
  Report Type: 
  Country: None (occurrence: None)
  Receive Date: 20090624
  Receipt Date: 20090616
  Transmission Date: 20091009
  Serious: Yes (Hospitalization)
  Sender: FDA-Public Use
  Company Number: B0579143A

PATIENT
  Age: 79 Year
  Sex: Female

DRUGS (4)
  1. AMOXICILLIN TRIHYDRATE [Suspect]
     Indication: ERYSIPELAS
     Dosage: 1G THREE TIMES PER DAY
     Route: 048
     Dates: start: 20090306, end: 20090309
  2. OFLOCET [Concomitant]
     Dosage: 200MG TWICE PER DAY
     Route: 065
     Dates: start: 20090309, end: 20090324
  3. ROCEPHIN [Concomitant]
     Dates: start: 20090310
  4. PREVISCAN [Concomitant]
     Dates: start: 20090317

REACTIONS (9)
  - DERMATITIS EXFOLIATIVE [None]
  - DYSPNOEA [None]
  - GENERAL PHYSICAL HEALTH DETERIORATION [None]
  - GENERALISED ERYTHEMA [None]
  - HYPERSENSITIVITY [None]
  - OEDEMA [None]
  - RASH [None]
  - RASH MACULAR [None]
  - URTICARIA [None]
